FAERS Safety Report 6619662-3 (Version None)
Quarter: 2010Q1

REPORT INFORMATION
  Report Type: 
  Country: None (occurrence: None)
  Receive Date: 20100303
  Receipt Date: 20100216
  Transmission Date: 20100710
  Serious: Yes (Death)
  Sender: FDA-Public Use
  Company Number: 2010020084

PATIENT
  Age: 57 Year
  Sex: Female

DRUGS (5)
  1. CARISOPRODOL [Suspect]
     Dosage: ORAL
     Route: 048
  2. CODEINE SULFATE [Suspect]
     Dosage: ORAL
     Route: 048
  3. AMPHETAMINES [Suspect]
     Dosage: ORAL
     Route: 048
  4. CIMETIDINE [Suspect]
     Dosage: ORAL
     Route: 048
  5. MULTIPLE VITAMINS [Suspect]
     Dosage: ORAL
     Route: 048

REACTIONS (2)
  - CARDIAC ARREST [None]
  - RESPIRATORY ARREST [None]
